FAERS Safety Report 10405386 (Version 4)
Quarter: 2015Q2

REPORT INFORMATION
  Report Type: Spontaneous
  Country: US (occurrence: US)
  Receive Date: 20140825
  Receipt Date: 20150524
  Transmission Date: 20150821
  Serious: Yes (Other)
  Sender: FDA-Public Use
  Company Number: US-JNJFOC-20140813271

PATIENT

DRUGS (8)
  1. LACTOSE [Suspect]
     Active Substance: LACTOSE
     Indication: DRUG ABUSE
     Route: 065
  2. CONCERTA [Suspect]
     Active Substance: METHYLPHENIDATE HYDROCHLORIDE
     Indication: DRUG ABUSE
     Route: 048
  3. METHAMPHETAMINE [Concomitant]
     Active Substance: METHAMPHETAMINE
     Indication: PRODUCT USED FOR UNKNOWN INDICATION
     Route: 065
  4. MARIJUANA [Concomitant]
     Active Substance: CANNABIS SATIVA SUBSP. INDICA TOP
     Indication: PRODUCT USED FOR UNKNOWN INDICATION
     Route: 065
  5. CONCERTA [Suspect]
     Active Substance: METHYLPHENIDATE HYDROCHLORIDE
     Indication: DRUG ABUSE
     Route: 048
  6. OPIOIDS NOS [Concomitant]
     Active Substance: UNSPECIFIED INGREDIENT
     Indication: PRODUCT USED FOR UNKNOWN INDICATION
     Route: 065
  7. CONCERTA [Suspect]
     Active Substance: METHYLPHENIDATE HYDROCHLORIDE
     Indication: DRUG ABUSE
     Route: 048
  8. COCAINE [Concomitant]
     Active Substance: COCAINE
     Indication: PRODUCT USED FOR UNKNOWN INDICATION
     Route: 065

REACTIONS (42)
  - Gastrointestinal disorder [Unknown]
  - Nausea [Unknown]
  - Abdominal symptom [Unknown]
  - Abdominal discomfort [Unknown]
  - Off label use [Unknown]
  - Fracture [Unknown]
  - Pain [Unknown]
  - Diarrhoea [Unknown]
  - Nightmare [Unknown]
  - Gastric disorder [Unknown]
  - Nasal congestion [Unknown]
  - Adverse event [Unknown]
  - Suicidal behaviour [Unknown]
  - Back pain [Unknown]
  - Influenza [Unknown]
  - Hypersensitivity [Unknown]
  - Decreased appetite [Unknown]
  - Urinary tract disorder [Unknown]
  - Dyspepsia [Unknown]
  - Irritability [Unknown]
  - Memory impairment [Unknown]
  - Poor quality sleep [Unknown]
  - Restless legs syndrome [Unknown]
  - Restlessness [Unknown]
  - Abnormal dreams [Unknown]
  - Asthenia [Unknown]
  - Anxiety [Unknown]
  - Depression [Unknown]
  - Headache [Unknown]
  - Cardiac disorder [Unknown]
  - Injury [Unknown]
  - Vomiting [Unknown]
  - Rhinorrhoea [Unknown]
  - Somnolence [Unknown]
  - Nasopharyngitis [Unknown]
  - Insomnia [Unknown]
  - Pruritus [Unknown]
  - Suicidal ideation [Unknown]
  - Dizziness [Unknown]
  - Disturbance in attention [Unknown]
  - Respiratory disorder [Unknown]
  - Hyperhidrosis [Unknown]
